FAERS Safety Report 12204203 (Version 1)
Quarter: 2016Q1

REPORT INFORMATION
  Report Type: Spontaneous
  Country: IT (occurrence: IT)
  Receive Date: 20160323
  Receipt Date: 20160323
  Transmission Date: 20160526
  Serious: Yes (Hospitalization)
  Sender: FDA-Public Use
  Company Number: IT-BAYER-2016-055701

PATIENT
  Age: 47 Year
  Sex: Male

DRUGS (1)
  1. ULTRAVIST [Suspect]
     Active Substance: IOPROMIDE
     Dosage: 110 ML, ONCE
     Dates: start: 20160130, end: 20160130

REACTIONS (3)
  - Tremor [Recovered/Resolved]
  - Type I hypersensitivity [Recovered/Resolved]
  - Piloerection [Recovered/Resolved]

NARRATIVE: CASE EVENT DATE: 20160130
